FAERS Safety Report 16398664 (Version 2)
Quarter: 2019Q2

REPORT INFORMATION
  Report Type: Spontaneous
  Country: US (occurrence: US)
  Receive Date: 20190606
  Receipt Date: 20190614
  Transmission Date: 20190711
  Serious: No
  Sender: FDA-Public Use
  Company Number: US-PFIZER INC-2019228553

PATIENT
  Age: 58 Year
  Sex: Female

DRUGS (1)
  1. IBRANCE [Suspect]
     Active Substance: PALBOCICLIB
     Indication: MENINGEAL NEOPLASM
     Dosage: 100 MG, CYCLIC (TAKE FOR 7 DAYS AND OFF FOR 21 DAYS)

REACTIONS (2)
  - Off label use [Unknown]
  - Product use in unapproved indication [Unknown]
